FAERS Safety Report 7994185-8 (Version None)
Quarter: 2011Q4

REPORT INFORMATION
  Report Type: 
  Country: None (occurrence: None)
  Receive Date: 20111220
  Receipt Date: 20111213
  Transmission Date: 20120403
  Serious: Yes (Other)
  Sender: FDA-Public Use
  Company Number: AU-BRISTOL-MYERS SQUIBB COMPANY-16292484

PATIENT
  Age: 44 Year
  Sex: Female

DRUGS (1)
  1. ORENCIA [Suspect]
     Indication: RHEUMATOID ARTHRITIS
     Dosage: NO OF CYCLES:1
     Route: 042
     Dates: start: 20071121

REACTIONS (4)
  - HYPERSENSITIVITY [None]
  - VERTIGO [None]
  - FATIGUE [None]
  - MOUTH ULCERATION [None]
